FAERS Safety Report 23320349 (Version 1)
Quarter: 2023Q4

REPORT INFORMATION
  Report Type: Spontaneous
  Country: US (occurrence: US)
  Receive Date: 20231220
  Receipt Date: 20231220
  Transmission Date: 20240109
  Serious: No
  Sender: FDA-Public Use
  Company Number: US-PROVENTION BIO, INC.-US-PRAG-23-00080

PATIENT
  Age: 51 Year
  Sex: Male

DRUGS (5)
  1. TZIELD [Suspect]
     Active Substance: TEPLIZUMAB-MZWV
     Indication: Product used for unknown indication
     Dosage: 121.6 MICROGRAM, SINGLE
     Route: 042
     Dates: start: 20230914, end: 20230914
  2. TZIELD [Suspect]
     Active Substance: TEPLIZUMAB-MZWV
     Dosage: 233.8 MICROGRAM, SINGLE
     Route: 042
     Dates: start: 20230915, end: 20230915
  3. TZIELD [Suspect]
     Active Substance: TEPLIZUMAB-MZWV
     Dosage: 467.5 MICROGRAM, SINGLE
     Route: 042
     Dates: start: 20230916, end: 20230916
  4. TZIELD [Suspect]
     Active Substance: TEPLIZUMAB-MZWV
     Dosage: 935 MICROGRAM, SINGLE
     Route: 042
     Dates: start: 20230918, end: 20230918
  5. TZIELD [Suspect]
     Active Substance: TEPLIZUMAB-MZWV
     Dosage: 1926.1 MICROGRAM, QD
     Route: 042
     Dates: start: 20230919

REACTIONS (7)
  - Back pain [Recovered/Resolved]
  - Blood glucose decreased [Recovered/Resolved]
  - Diarrhoea [Recovered/Resolved]
  - Rash pruritic [Unknown]
  - Vomiting [Recovered/Resolved]
  - Pyrexia [Unknown]
  - Peripheral swelling [Unknown]

NARRATIVE: CASE EVENT DATE: 20230916
